FAERS Safety Report 4286426-8 (Version None)
Quarter: 2004Q1

REPORT INFORMATION
  Report Type: 
  Country: None (occurrence: None)
  Receive Date: 20040202
  Receipt Date: 20040202
  Transmission Date: 20041129
  Serious: Yes (Death)
  Sender: FDA-Public Use
  Company Number: None

PATIENT
  Sex: Female
  Weight: 82.3 kg

DRUGS (8)
  1. LEPIRUDIN [Suspect]
     Indication: HEPARIN-INDUCED THROMBOCYTOPENIA
     Dosage: 0.15 MCG/KG/MIN
  2. METOPROLOL [Concomitant]
  3. LORAZEPAM [Concomitant]
  4. DEXAMETHASONE [Concomitant]
  5. GABAPENTIN [Concomitant]
  6. LANSOPRAZOLE [Concomitant]
  7. HYDROMORPHONE HCL [Concomitant]
  8. DOCUSATE [Concomitant]

REACTIONS (8)
  - ACUTE MYOCARDIAL INFARCTION [None]
  - ASTHENIA [None]
  - ATRIOVENTRICULAR BLOCK [None]
  - CONFUSIONAL STATE [None]
  - COUGH [None]
  - HEPARIN-INDUCED THROMBOCYTOPENIA [None]
  - NEOPLASM RECURRENCE [None]
  - WHITE BLOOD CELL COUNT INCREASED [None]
